FAERS Safety Report 4464195-6 (Version None)
Quarter: 2004Q4

REPORT INFORMATION
  Report Type: 
  Country: None (occurrence: None)
  Receive Date: 20041001
  Receipt Date: 20040924
  Transmission Date: 20050328
  Serious: Yes (Hospitalization)
  Sender: FDA-Public Use
  Company Number: US-GLAXOSMITHKLINE-A0527304A

PATIENT
  Age: 45 Year
  Sex: Female

DRUGS (1)
  1. WELLBUTRIN [Suspect]
     Indication: DEPRESSION
     Dosage: 150MG PER DAY
     Route: 048
     Dates: start: 20040818, end: 20040912

REACTIONS (2)
  - CHEST PAIN [None]
  - PAIN IN EXTREMITY [None]
